FAERS Safety Report 15686895 (Version 1)
Quarter: 2018Q4

REPORT INFORMATION
  Report Type: Spontaneous
  Country: US (occurrence: US)
  Receive Date: 20181204
  Receipt Date: 20181204
  Transmission Date: 20190205
  Serious: Yes (Hospitalization)
  Sender: FDA-Public Use
  Company Number: US-PORTOLA PHARMACEUTICALS, INC.-2018US000104

PATIENT

DRUGS (3)
  1. APIXABAN [Concomitant]
     Active Substance: APIXABAN
     Dosage: UNK
  2. KCENTRA [Concomitant]
     Active Substance: COAGULATION FACTOR IX HUMAN\COAGULATION FACTOR VII HUMAN\COAGULATION FACTOR X HUMAN\PROTEIN C\PROTEIN S HUMAN\PROTHROMBIN
     Dosage: 3267 UNITS, UNK
     Dates: start: 20180822
  3. ANDEXXA [Suspect]
     Active Substance: ANDEXANET ALFA
     Indication: PROCOAGULANT THERAPY
     Dosage: UNK, LOW DOSE
     Route: 040
     Dates: start: 20180822, end: 20180822

REACTIONS (3)
  - Ischaemic stroke [Unknown]
  - Pulmonary embolism [Unknown]
  - Renal artery thrombosis [Unknown]

NARRATIVE: CASE EVENT DATE: 20180825
